FAERS Safety Report 6726136-8 (Version None)
Quarter: 2010Q2

REPORT INFORMATION
  Report Type: 
  Country: None (occurrence: None)
  Receive Date: 20100514
  Receipt Date: 20100429
  Transmission Date: 20101027
  Serious: Yes (Hospitalization)
  Sender: FDA-Public Use
  Company Number: CA-WATSON-2010-06516

PATIENT

DRUGS (4)
  1. SULFAMETHOXAZOLE AND TRIMETHOPRIM [Suspect]
     Indication: URINARY TRACT INFECTION
  2. AMPICILLIN SODIUM (WATSON LABORATORIES) [Suspect]
     Indication: URINARY TRACT INFECTION
  3. NITROFURANTOIN [Suspect]
     Indication: URINARY TRACT INFECTION
  4. CIPROFLOXACIN HCL [Suspect]
     Indication: URINARY TRACT INFECTION
     Dosage: UNK

REACTIONS (2)
  - DRUG INTERACTION [None]
  - GASTROINTESTINAL HAEMORRHAGE [None]
